FAERS Safety Report 20489005 (Version 1)
Quarter: 2022Q1

REPORT INFORMATION
  Report Type: Spontaneous
  Country: US (occurrence: None)
  Receive Date: 20220217
  Receipt Date: 20220217
  Transmission Date: 20220423
  Serious: Yes (Hospitalization)
  Sender: FDA-Public Use
  Company Number: None

PATIENT
  Sex: Female

DRUGS (1)
  1. PROCRIT [Suspect]
     Active Substance: ERYTHROPOIETIN
     Indication: Breast cancer female
     Dosage: OTHER STRENGTH : 20000 UNIT/ML;?OTHER QUANTITY : 20000 UNIT/ML;?OTHER FREQUENCY : ONCE EVERY 2 TO 4;
     Route: 058
     Dates: start: 202001

REACTIONS (1)
  - Deep vein thrombosis [None]
